FAERS Safety Report 25946898 (Version 2)
Quarter: 2025Q4

REPORT INFORMATION
  Report Type: Spontaneous
  Country: JP (occurrence: JP)
  Receive Date: 20251022
  Receipt Date: 20251113
  Transmission Date: 20260117
  Serious: Yes (Other)
  Sender: AMGEN
  Company Number: JP-AMGEN-JPNSP2025205366

PATIENT
  Age: 6 Decade
  Sex: Male

DRUGS (2)
  1. BEVACIZUMAB [Suspect]
     Active Substance: BEVACIZUMAB
     Indication: Hepatocellular carcinoma
     Dosage: UNK, NOV/IN AN UNKNOWN YEAR, DRIP INFUSION
     Route: 040
  2. ATEZOLIZUMAB [Concomitant]
     Active Substance: ATEZOLIZUMAB
     Indication: Hepatocellular carcinoma
     Dosage: UNK, NOV/IN AN UNKNOWN YEAR
     Route: 065

REACTIONS (6)
  - Bronchial fistula [Unknown]
  - Hepatocellular carcinoma [Unknown]
  - Infectious pleural effusion [Unknown]
  - Post procedural bile leak [Unknown]
  - Haematoma [Unknown]
  - Off label use [Unknown]
